FAERS Safety Report 13876979 (Version 1)
Quarter: 2017Q3

REPORT INFORMATION
  Report Type: Spontaneous
  Country: CH (occurrence: CH)
  Receive Date: 20170817
  Receipt Date: 20170817
  Transmission Date: 20171127
  Serious: Yes (Hospitalization, Other)
  Sender: FDA-Public Use
  Company Number: CH-TEVA-795664ISR

PATIENT
  Age: 68 Year
  Sex: Male
  Weight: 67 kg

DRUGS (14)
  1. GLICLAZID MEPHA [Concomitant]
     Active Substance: GLICLAZIDE
     Indication: TYPE 2 DIABETES MELLITUS
     Dosage: 30 MILLIGRAM DAILY;
     Route: 048
     Dates: start: 20150606
  2. QUETIAPIN MEPHA [Concomitant]
     Active Substance: QUETIAPINE FUMARATE
     Indication: MANIA
     Dosage: 100 MILLIGRAM DAILY;
     Route: 048
     Dates: start: 20170708
  3. SAROTEN RETARD [Concomitant]
     Active Substance: AMITRIPTYLINE
     Indication: DEPRESSION
     Dosage: 25 MILLIGRAM DAILY;
     Route: 048
     Dates: start: 20150606
  4. LAXOBERON [Concomitant]
     Active Substance: SODIUM PICOSULFATE
     Indication: CONSTIPATION
     Dosage: 20 GTT DAILY;
     Route: 048
     Dates: start: 20150606
  5. FLURAZEPAM [Concomitant]
     Active Substance: FLURAZEPAM\FLURAZEPAM HYDROCHLORIDE
     Indication: INSOMNIA
     Dosage: 30 MILLIGRAM DAILY;
     Route: 048
     Dates: start: 20150606
  6. MACROGOL MEPHA [Concomitant]
     Indication: CONSTIPATION
     Route: 048
     Dates: start: 20170217
  7. TAMSULOSIN MEPHA [Concomitant]
     Indication: MICTURITION DISORDER
     Dosage: 400 MICROGRAM DAILY;
     Route: 048
     Dates: start: 20170201
  8. PRAVASTATIN MEPHA [Concomitant]
     Indication: CORONARY ARTERY DISEASE
     Dosage: 40 MILLIGRAM DAILY;
     Route: 048
     Dates: start: 20150606
  9. OLANZAPIN MEPHA [Concomitant]
     Indication: BIPOLAR DISORDER
     Dosage: 10 MILLIGRAM DAILY;
     Route: 048
     Dates: start: 20150606
  10. LITHIUM. [Suspect]
     Active Substance: LITHIUM
     Indication: BIPOLAR I DISORDER
     Route: 048
     Dates: start: 19970101, end: 20170621
  11. ASPIRIN CARDIO [Concomitant]
     Active Substance: ASPIRIN
     Indication: CORONARY ARTERY DISEASE
     Dosage: 100 MILLIGRAM DAILY;
     Route: 048
     Dates: start: 20150606
  12. AMLODIPIN [Concomitant]
     Active Substance: AMLODIPINE BESYLATE
     Indication: HYPERTENSION
     Route: 048
     Dates: start: 20150422
  13. METFORMIN MEPHA [Concomitant]
     Indication: TYPE 2 DIABETES MELLITUS
     Dosage: 1700 MILLIGRAM DAILY;
     Route: 048
     Dates: start: 20160318
  14. SERALIN MEPHA [Suspect]
     Active Substance: SERTRALINE HYDROCHLORIDE
     Indication: DEPRESSION
     Route: 048
     Dates: start: 2008

REACTIONS (2)
  - Nephrogenic diabetes insipidus [Recovering/Resolving]
  - Renal failure [Recovering/Resolving]

NARRATIVE: CASE EVENT DATE: 20170101
